FAERS Safety Report 24952905 (Version 1)
Quarter: 2025Q1

REPORT INFORMATION
  Report Type: Spontaneous
  Country: US (occurrence: US)
  Receive Date: 20250211
  Receipt Date: 20250211
  Transmission Date: 20250408
  Serious: No
  Sender: ABBVIE
  Company Number: US-ABBVIE-6126968

PATIENT
  Sex: Female

DRUGS (2)
  1. ATELVIA [Suspect]
     Active Substance: RISEDRONATE SODIUM
     Indication: Bone disorder
     Route: 065
     Dates: start: 20250206
  2. SYNTHROID [Suspect]
     Active Substance: LEVOTHYROXINE SODIUM
     Indication: Product used for unknown indication
     Route: 048

REACTIONS (1)
  - Feeling abnormal [Unknown]
